FAERS Safety Report 9415633 (Version 1)
Quarter: 2013Q3

REPORT INFORMATION
  Report Type: Spontaneous
  Country: BE (occurrence: BE)
  Receive Date: 20130723
  Receipt Date: 20130723
  Transmission Date: 20140515
  Serious: Yes (Death, Other)
  Sender: FDA-Public Use
  Company Number: BE-BAYER-2013-087721

PATIENT
  Age: 88 Year
  Sex: Male
  Weight: 103.86 kg

DRUGS (14)
  1. XARELTO [Suspect]
     Dosage: 20 MG, QD
     Route: 048
     Dates: start: 20130206, end: 20130410
  2. CARDIOASPIRINE [Suspect]
     Indication: CARDIOVASCULAR DISORDER
     Dosage: 100 MG, QD
  3. LANITOP [Suspect]
     Indication: ATRIAL FIBRILLATION
     Dosage: 0.1 MG, QD
     Dates: start: 20130311, end: 20130412
  4. COVERSYL [Concomitant]
     Indication: HYPERTENSION
     Dosage: 5 MG, QD
     Route: 048
  5. COVERSYL [Concomitant]
     Indication: CARDIAC FAILURE
  6. BURINEX [Concomitant]
     Indication: OEDEMA PERIPHERAL
     Dosage: 5 MG, BID
     Route: 048
  7. PROSTASERENE [Concomitant]
     Indication: BENIGN PROSTATIC HYPERPLASIA
     Dosage: 320 MG, QD
     Route: 048
  8. FERO-GRADUMET [Concomitant]
     Dosage: 525 MG, BID
     Route: 048
  9. EMCONCOR [Concomitant]
     Indication: ATRIAL FIBRILLATION
     Dosage: 2.5 MG, QD
     Route: 048
     Dates: start: 20130322, end: 20130412
  10. EMCONCOR [Concomitant]
     Indication: HYPERTENSION
  11. EMCONCOR [Concomitant]
     Indication: CARDIAC FAILURE
  12. HYGROTON [Concomitant]
     Indication: OEDEMA PERIPHERAL
     Dosage: 50 MG, QD
     Route: 048
     Dates: start: 20130411, end: 20130412
  13. HYGROTON [Concomitant]
     Indication: CARDIAC FAILURE
  14. ZOLPIDEM [Concomitant]
     Indication: SLEEP DISORDER
     Dosage: 10 MG, QD
     Route: 048

REACTIONS (9)
  - Erysipelas [Fatal]
  - Haematoma [None]
  - Cardiac failure [None]
  - Escherichia sepsis [None]
  - Sudden death [Fatal]
  - Dyspnoea [None]
  - Arthralgia [None]
  - Pain in extremity [None]
  - Extra dose administered [None]
